FAERS Safety Report 6508202-5 (Version None)
Quarter: 2009Q4

REPORT INFORMATION
  Report Type: 
  Country: None (occurrence: None)
  Receive Date: 20091221
  Receipt Date: 20081204
  Transmission Date: 20100525
  Serious: No
  Sender: FDA-Public Use
  Company Number: US-ASTRAZENECA-2008UW26995

PATIENT
  Age: 83 Year
  Sex: Female

DRUGS (6)
  1. CRESTOR [Suspect]
     Indication: BLOOD CHOLESTEROL INCREASED
     Dosage: 20 MG
     Route: 048
  2. ADVAIR DISKUS 100/50 [Concomitant]
  3. SPIRIVA [Concomitant]
  4. LEVOTHYROXINE SODIUM [Concomitant]
  5. ASPIRIN [Concomitant]
  6. ALPRAZOLAM [Concomitant]

REACTIONS (1)
  - ILL-DEFINED DISORDER [None]
